FAERS Safety Report 9288651 (Version 1)
Quarter: 2012Q4

REPORT INFORMATION
  Report Type: Spontaneous
  Country: US (occurrence: None)
  Receive Date: 20120912
  Receipt Date: 20120912
  Transmission Date: 20130627
  Serious: Yes (Death)
  Sender: FDA-Public Use
  Company Number: DKLU1083623

PATIENT
  Age: 5 Year
  Sex: Female

DRUGS (6)
  1. SABRIL [Suspect]
     Indication: PARTIAL SEIZURES
     Dates: start: 20100430
  2. SABRIL [Suspect]
     Indication: INFANTILE SPASMS
     Dates: start: 20100430
  3. SABRIL [Suspect]
     Indication: PARTIAL SEIZURES
     Route: 048
     Dates: start: 20100828
  4. SABRIL [Suspect]
     Indication: INFANTILE SPASMS
     Route: 048
     Dates: start: 20100828
  5. LAMICTAL (LAMOTRIGINE) TABLET [Concomitant]
  6. DEPAKOTE [Concomitant]

REACTIONS (1)
  - Death [None]
